FAERS Safety Report 7137289-4 (Version None)
Quarter: 2010Q4

REPORT INFORMATION
  Report Type: 
  Country: None (occurrence: None)
  Receive Date: 20101119
  Receipt Date: 20100405
  Transmission Date: 20110411
  Serious: Yes (Death)
  Sender: FDA-Public Use
  Company Number: DSA_44266_2010

PATIENT
  Sex: Female

DRUGS (7)
  1. XENAZINE [Suspect]
     Indication: HUNTINGTON'S DISEASE
     Dosage: (12.5 MG QID, PRN ORAL)
     Route: 048
     Dates: start: 20090619
  2. SYNTHROID [Concomitant]
  3. NAMENDA [Concomitant]
  4. ARICEPT [Concomitant]
  5. ALTACE [Concomitant]
  6. NASONEX [Concomitant]
  7. RESTASIS [Concomitant]

REACTIONS (1)
  - DEATH [None]
